FAERS Safety Report 5011303-4 (Version None)
Quarter: 2006Q2

REPORT INFORMATION
  Report Type: 
  Country: None (occurrence: None)
  Receive Date: 20060404
  Receipt Date: 20060109
  Transmission Date: 20061013
  Serious: No
  Sender: FDA-Public Use
  Company Number: US200601000872

PATIENT
  Age: 77 Year
  Sex: Female

DRUGS (8)
  1. CYMBALTA [Suspect]
     Indication: DEPRESSION
     Dosage: SEE IMAGE
     Dates: start: 20051124, end: 20051225
  2. CYMBALTA [Suspect]
     Indication: DEPRESSION
     Dosage: SEE IMAGE
     Dates: start: 20051226
  3. VERAPAMIL [Concomitant]
  4. COZAAR [Concomitant]
  5. FOILIC ACID (FOLIC ACID UNKNOWN MANUFACTURER) [Concomitant]
  6. MULTIVITAMINS (ASCORBIC ACID, ERGOCALCIFEROL, FOLIC ACID, NICOTINAMIDE [Concomitant]
  7. VITAMIN PREPARATION COMPOUND (VITAMIN NOS) [Concomitant]
  8. ALLOPURINOL [Concomitant]

REACTIONS (2)
  - ARTHRITIS [None]
  - BLOOD GLUCOSE INCREASED [None]
